FAERS Safety Report 7341257-7 (Version None)
Quarter: 2011Q1

REPORT INFORMATION
  Report Type: 
  Country: None (occurrence: None)
  Receive Date: 20110309
  Receipt Date: 20110304
  Transmission Date: 20110831
  Serious: Yes (Hospitalization)
  Sender: FDA-Public Use
  Company Number: JP-SANOFI-AVENTIS-2011SA013238

PATIENT
  Sex: Female

DRUGS (3)
  1. CISPLATIN [Concomitant]
     Indication: HEAD AND NECK CANCER
     Route: 065
  2. TAXOTERE [Suspect]
     Indication: HEAD AND NECK CANCER
     Route: 041
  3. 5-FU [Concomitant]
     Indication: HEAD AND NECK CANCER
     Route: 065

REACTIONS (2)
  - HYPONATRAEMIA [None]
  - INAPPROPRIATE ANTIDIURETIC HORMONE SECRETION [None]
